FAERS Safety Report 24080424 (Version 1)
Quarter: 2024Q3

REPORT INFORMATION
  Report Type: Report from Study
  Country: BR (occurrence: BR)
  Receive Date: 20240711
  Receipt Date: 20240711
  Transmission Date: 20241016
  Serious: Yes (Hospitalization, Other)
  Sender: NOVARTIS
  Company Number: BR-002147023-NVSC2024BR143161

PATIENT
  Sex: Male
  Weight: 75 kg

DRUGS (1)
  1. ENTRESTO [Suspect]
     Active Substance: SACUBITRIL\VALSARTAN
     Indication: Cardiac failure
     Dosage: 50 MG, BID
     Route: 048

REACTIONS (8)
  - Urinary tract infection bacterial [Not Recovered/Not Resolved]
  - Hypotension [Unknown]
  - Aspiration [Unknown]
  - Gait inability [Unknown]
  - Vomiting [Unknown]
  - Pyrexia [Unknown]
  - Peripheral swelling [Recovered/Resolved]
  - Blood pressure systolic decreased [Unknown]

NARRATIVE: CASE EVENT DATE: 20240101
